FAERS Safety Report 15820199 (Version 1)
Quarter: 2019Q1

REPORT INFORMATION
  Report Type: Spontaneous
  Country: US (occurrence: US)
  Receive Date: 20190114
  Receipt Date: 20190114
  Transmission Date: 20190417
  Serious: Yes (Hospitalization)
  Sender: FDA-Public Use
  Company Number: US-HORIZON-PRO-0005-2019

PATIENT
  Age: 30 Year
  Sex: Female

DRUGS (2)
  1. MIDODRINE [Concomitant]
     Active Substance: MIDODRINE
  2. PROCYSBI [Suspect]
     Active Substance: CYSTEAMINE BITARTRATE
     Indication: CYSTINOSIS
     Dosage: 1000 MG (13 X 75 MG CAPSULES, 1 X 25 MG CAPSULES) TWICE DAILY

REACTIONS (1)
  - Gastrointestinal haemorrhage [Not Recovered/Not Resolved]
